FAERS Safety Report 13916713 (Version 2)
Quarter: 2017Q3

REPORT INFORMATION
  Report Type: Spontaneous
  Country: ID (occurrence: ID)
  Receive Date: 20170829
  Receipt Date: 20170918
  Transmission Date: 20171127
  Serious: Yes (Death, Other)
  Sender: FDA-Public Use
  Company Number: ID-BAYER-2017-159975

PATIENT
  Age: 48 Year
  Sex: Female

DRUGS (1)
  1. NEXAVAR [Suspect]
     Active Substance: SORAFENIB
     Indication: HEPATOCELLULAR CARCINOMA
     Dosage: 200 MG, BID
     Route: 048
     Dates: start: 201703, end: 201708

REACTIONS (10)
  - Ascites [None]
  - Diarrhoea [None]
  - Hepatocellular carcinoma [Fatal]
  - Metastases to bone [None]
  - Aspartate aminotransferase increased [None]
  - Metastases to lung [None]
  - Portal vein thrombosis [None]
  - Platelet count increased [None]
  - Alpha 1 foetoprotein increased [None]
  - Malignant pleural effusion [None]

NARRATIVE: CASE EVENT DATE: 201706
